FAERS Safety Report 10147497 (Version 1)
Quarter: 2014Q2

REPORT INFORMATION
  Report Type: Spontaneous
  Country: US (occurrence: US)
  Receive Date: 20140501
  Receipt Date: 20140501
  Transmission Date: 20141212
  Serious: Yes (Hospitalization)
  Sender: FDA-Public Use
  Company Number: US-ACTELION-A-US2014-97956

PATIENT
  Age: 60 Year
  Sex: Female
  Weight: 56.54 kg

DRUGS (3)
  1. TRACLEER [Suspect]
     Indication: PULMONARY ARTERIAL HYPERTENSION
     Dosage: UNK
     Route: 048
  2. FLOLAN [Suspect]
     Indication: PULMONARY ARTERIAL HYPERTENSION
     Dosage: 20 NG/KG, PER MIN
     Route: 041
     Dates: start: 20100609
  3. WARFARIN SODIUM [Concomitant]

REACTIONS (6)
  - Epistaxis [Unknown]
  - Oedema peripheral [Recovered/Resolved]
  - Condition aggravated [Recovered/Resolved]
  - Dyspnoea [Unknown]
  - Catheter site erythema [Unknown]
  - Catheter site pruritus [Unknown]
